FAERS Safety Report 19739085 (Version 1)
Quarter: 2021Q3

REPORT INFORMATION
  Report Type: Spontaneous
  Country: US (occurrence: US)
  Receive Date: 20210824
  Receipt Date: 20210824
  Transmission Date: 20211014
  Serious: No
  Sender: FDA-Public Use
  Company Number: US-DRREDDYS-SPO/USA/21/0138958

PATIENT
  Age: 76 Year
  Sex: Male
  Weight: 108 kg

DRUGS (1)
  1. SILVER SULFADIAZINE. [Suspect]
     Active Substance: SILVER SULFADIAZINE
     Indication: LOCALISED INFECTION
     Dosage: APPLIES ONCE DAILY

REACTIONS (2)
  - Product use in unapproved indication [Unknown]
  - Product use issue [Unknown]
